FAERS Safety Report 12298003 (Version 1)
Quarter: 2016Q2

REPORT INFORMATION
  Report Type: Spontaneous
  Country: CN (occurrence: CN)
  Receive Date: 20160422
  Receipt Date: 20160422
  Transmission Date: 20160815
  Serious: Yes (Hospitalization, Other)
  Sender: FDA-Public Use
  Company Number: PHHY2016CN051768

PATIENT
  Age: 37 Year
  Sex: Female

DRUGS (12)
  1. CLOZAPINE. [Suspect]
     Active Substance: CLOZAPINE
     Dosage: 250 MG, QD
     Route: 065
  2. OLANZAPINE. [Suspect]
     Active Substance: OLANZAPINE
     Indication: HALLUCINATION, AUDITORY
  3. RISPERIDONE. [Suspect]
     Active Substance: RISPERIDONE
     Indication: HALLUCINATION, AUDITORY
     Dosage: 6 MG, QD
     Route: 065
  4. CLOZAPINE. [Suspect]
     Active Substance: CLOZAPINE
     Dosage: 475 MG, QD
     Route: 065
  5. HALOPERIDOL. [Suspect]
     Active Substance: HALOPERIDOL
     Indication: SCHIZOPHRENIA
     Dosage: 10 MG, QD
     Route: 030
  6. CLOZAPINE. [Suspect]
     Active Substance: CLOZAPINE
     Dosage: 25 MG, QD
     Route: 065
  7. CLOZAPINE. [Suspect]
     Active Substance: CLOZAPINE
     Indication: SCHIZOPHRENIA
     Dosage: 350 MG, QD
     Route: 065
  8. CLOZAPINE. [Suspect]
     Active Substance: CLOZAPINE
     Dosage: 425 MG, QD
     Route: 065
  9. OLANZAPINE. [Suspect]
     Active Substance: OLANZAPINE
     Indication: CONFUSIONAL STATE
     Dosage: 20 MG, QD
     Route: 065
  10. RISPERIDONE. [Suspect]
     Active Substance: RISPERIDONE
     Indication: INSOMNIA
  11. RISPERIDONE. [Suspect]
     Active Substance: RISPERIDONE
     Indication: CONFUSIONAL STATE
  12. OLANZAPINE. [Suspect]
     Active Substance: OLANZAPINE
     Indication: INSOMNIA

REACTIONS (18)
  - Confusional state [Recovering/Resolving]
  - Agitation [Recovering/Resolving]
  - Insomnia [Recovering/Resolving]
  - Neuroleptic malignant syndrome [Recovering/Resolving]
  - Hyperhidrosis [Recovering/Resolving]
  - Lethargy [Recovering/Resolving]
  - Muscle rigidity [Recovering/Resolving]
  - Body temperature increased [Recovering/Resolving]
  - Labile blood pressure [Recovering/Resolving]
  - Tachypnoea [Recovering/Resolving]
  - Brain oedema [Recovering/Resolving]
  - Tremor [Recovering/Resolving]
  - Delirium [Recovering/Resolving]
  - Hypotension [Unknown]
  - Drug ineffective [Unknown]
  - Altered state of consciousness [Recovering/Resolving]
  - Hallucination, auditory [Recovering/Resolving]
  - Tachycardia [Recovering/Resolving]
